FAERS Safety Report 19257873 (Version 1)
Quarter: 2021Q2

REPORT INFORMATION
  Report Type: Report from Study
  Country: None (occurrence: CO)
  Receive Date: 20210514
  Receipt Date: 20210514
  Transmission Date: 20210717
  Serious: Yes (Hospitalization, Other)
  Sender: FDA-Public Use
  Company Number: CO-ABBVIE-21K-036-3902879-00

PATIENT
  Sex: Male
  Weight: 118 kg

DRUGS (1)
  1. HUMIRA [Suspect]
     Active Substance: ADALIMUMAB
     Indication: UVEITIS
     Route: 058
     Dates: start: 20190909

REACTIONS (6)
  - Asphyxia [Recovering/Resolving]
  - COVID-19 [Recovering/Resolving]
  - Discomfort [Not Recovered/Not Resolved]
  - Weight decreased [Recovering/Resolving]
  - Feeling of despair [Not Recovered/Not Resolved]
  - Discouragement [Recovering/Resolving]

NARRATIVE: CASE EVENT DATE: 2021
